FAERS Safety Report 5843972-0 (Version None)
Quarter: 2008Q3

REPORT INFORMATION
  Report Type: 
  Country: None (occurrence: None)
  Receive Date: 20080813
  Receipt Date: 20080801
  Transmission Date: 20090109
  Serious: Yes (Other)
  Sender: FDA-Public Use
  Company Number: BR-ROCHE-579531

PATIENT
  Sex: Female
  Weight: 62 kg

DRUGS (6)
  1. RIVOTRIL [Suspect]
     Indication: DEPRESSION
     Dosage: OTHER INDICATION REPORTED: INSOMNIA
     Route: 048
     Dates: start: 20070401
  2. RIVOTRIL [Suspect]
     Dosage: RESTARTED AFTER FOUR OR FIVE DAYS IN MARCH 2008.
     Route: 048
     Dates: start: 20080301, end: 20080401
  3. RIVOTRIL [Suspect]
     Route: 048
     Dates: start: 20080401
  4. DIAMICRON [Concomitant]
     Route: 048
     Dates: start: 20030101
  5. OLMESARTAN MEDOXOMIL [Concomitant]
     Indication: HYPERTENSION
     Route: 048
     Dates: start: 20080101
  6. METFORMIN HCL [Concomitant]

REACTIONS (8)
  - ANOREXIA [None]
  - EAR CONGESTION [None]
  - HYPERTENSION [None]
  - SENSORY DISTURBANCE [None]
  - SKIN DISCOLOURATION [None]
  - TINNITUS [None]
  - VERTIGO [None]
  - VOMITING [None]
